FAERS Safety Report 21695720 (Version 1)
Quarter: 2022Q4

REPORT INFORMATION
  Report Type: Report from Study
  Country: US (occurrence: US)
  Receive Date: 20221207
  Receipt Date: 20221207
  Transmission Date: 20230112
  Serious: No
  Sender: FDA-Public Use
  Company Number: US-ABBVIE-4195269

PATIENT
  Sex: Female

DRUGS (6)
  1. MAVYRET [Suspect]
     Active Substance: GLECAPREVIR\PIBRENTASVIR
     Indication: Chronic hepatitis C
     Dosage: 100-40MG TAKE 3 TABLETS BY MOUTH ONCE DAILY
     Route: 048
  2. MAVYRET [Suspect]
     Active Substance: GLECAPREVIR\PIBRENTASVIR
     Indication: Chronic hepatitis C
     Dosage: 100-40MG TAKE 3 TABLETS BY MOUTH ONCE DAILY WITH FOOD
     Route: 048
  3. TRULICITY HYDROCHLOROTHIAZIDE [Concomitant]
     Indication: Product used for unknown indication
  4. GABAPENTIN AMBIEN [Concomitant]
     Indication: Product used for unknown indication
  5. PRINIVIL TRESIBA FLEXTOUCH [Concomitant]
     Indication: Product used for unknown indication
  6. METFORMIN HYDROCHLORIDE [Concomitant]
     Active Substance: METFORMIN HYDROCHLORIDE
     Indication: Product used for unknown indication

REACTIONS (5)
  - Rash erythematous [Unknown]
  - Pruritus [Unknown]
  - Headache [Unknown]
  - Chromaturia [Unknown]
  - Nausea [Unknown]
